FAERS Safety Report 25848060 (Version 1)
Quarter: 2025Q3

REPORT INFORMATION
  Report Type: Spontaneous
  Country: EU (occurrence: EU)
  Receive Date: 20250925
  Receipt Date: 20250925
  Transmission Date: 20251020
  Serious: Yes (Disabling, Other)
  Sender: BRECKENRIDGE PHARMACEUTICAL, INC.
  Company Number: EU-Breckenridge Pharmaceutical, Inc.-2185292

PATIENT
  Sex: Female

DRUGS (1)
  1. DULOXETINE [Suspect]
     Active Substance: DULOXETINE
     Indication: Adverse drug reaction

REACTIONS (11)
  - Fatigue [Recovered/Resolved]
  - Nasopharyngitis [Recovered/Resolved]
  - Diplopia [Not Recovered/Not Resolved]
  - Electric shock sensation [Recovered/Resolved]
  - Heart rate [Recovered/Resolved]
  - Illness [Recovered/Resolved]
  - Balance disorder [Recovered/Resolved]
  - Anxiety [Recovered/Resolved]
  - Dizziness [Recovered/Resolved]
  - Headache [Recovered/Resolved]
  - Cough [Recovered/Resolved]
